FAERS Safety Report 6263316-2 (Version None)
Quarter: 2009Q3

REPORT INFORMATION
  Report Type: 
  Country: None (occurrence: None)
  Receive Date: 20090710
  Receipt Date: 20090528
  Transmission Date: 20100115
  Serious: No
  Sender: FDA-Public Use
  Company Number: A0787124A

PATIENT
  Age: 58 Year
  Sex: Male

DRUGS (3)
  1. REQUIP XL [Suspect]
     Indication: RESTLESS LEGS SYNDROME
     Dosage: 2MG UNKNOWN
     Route: 048
     Dates: start: 20090518, end: 20090520
  2. FIBER TABS [Concomitant]
  3. FIBERCHOICE UNSPECIFIED [Concomitant]

REACTIONS (1)
  - MEDICATION RESIDUE [None]
